FAERS Safety Report 7473457-X (Version None)
Quarter: 2011Q2

REPORT INFORMATION
  Report Type: 
  Country: None (occurrence: None)
  Receive Date: 20110511
  Receipt Date: 20110505
  Transmission Date: 20111010
  Serious: Yes (Death)
  Sender: FDA-Public Use
  Company Number: US-CELGENEUS-163-20785-11030607

PATIENT
  Sex: Female

DRUGS (1)
  1. THALOMID [Suspect]
     Dosage: 200 MILLIGRAM
     Route: 048
     Dates: start: 20110114, end: 20110220

REACTIONS (1)
  - SUBARACHNOID HAEMORRHAGE [None]
